FAERS Safety Report 11067346 (Version 1)
Quarter: 2015Q2

REPORT INFORMATION
  Report Type: Spontaneous
  Country: VN (occurrence: VN)
  Receive Date: 20150426
  Receipt Date: 20150426
  Transmission Date: 20150821
  Serious: Yes (Death)
  Sender: FDA-Public Use
  Company Number: VN-009507513-1504VNM021227

PATIENT
  Sex: Male

DRUGS (1)
  1. COZAAR [Suspect]
     Active Substance: LOSARTAN POTASSIUM
     Dosage: DAILY 1 TABLET OF COZAAR 50MG IN THE MORNING
     Route: 048

REACTIONS (1)
  - Cardiac disorder [Fatal]
